FAERS Safety Report 5570079-2 (Version None)
Quarter: 2007Q4

REPORT INFORMATION
  Report Type: 
  Country: None (occurrence: None)
  Receive Date: 20071220
  Receipt Date: 20071210
  Transmission Date: 20080405
  Serious: Yes (Other)
  Sender: FDA-Public Use
  Company Number: AR-PFIZER INC-2007103247

PATIENT
  Sex: Female
  Weight: 85 kg

DRUGS (7)
  1. DETRUSITOL [Suspect]
     Indication: URINARY INCONTINENCE
     Route: 048
  2. RISPERIDONE [Concomitant]
  3. VALSARTAN [Concomitant]
  4. DIUREX [Concomitant]
     Route: 048
  5. ATENOLOL [Concomitant]
     Route: 048
  6. VENLAFAXINE HCL [Concomitant]
     Route: 048
  7. LEVOTHYROXINE SODIUM [Concomitant]
     Route: 048

REACTIONS (2)
  - FLUID RETENTION [None]
  - OEDEMA PERIPHERAL [None]
